FAERS Safety Report 18562803 (Version 1)
Quarter: 2020Q4

REPORT INFORMATION
  Report Type: Spontaneous
  Country: US (occurrence: US)
  Receive Date: 20201201
  Receipt Date: 20201201
  Transmission Date: 20210114
  Serious: No
  Sender: FDA-Public Use
  Company Number: US-BAUSCH-BL-2020-033689

PATIENT
  Age: 94 Year
  Sex: Female

DRUGS (1)
  1. TIAZAC [Suspect]
     Active Substance: DILTIAZEM HYDROCHLORIDE
     Indication: PRODUCT USED FOR UNKNOWN INDICATION
     Route: 048

REACTIONS (3)
  - Blood pressure abnormal [Unknown]
  - Product quality issue [Unknown]
  - Product colour issue [Unknown]

NARRATIVE: CASE EVENT DATE: 2020
